FAERS Safety Report 4616046-4 (Version None)
Quarter: 2005Q1

REPORT INFORMATION
  Report Type: 
  Country: None (occurrence: None)
  Receive Date: 20050321
  Receipt Date: 20040317
  Transmission Date: 20050727
  Serious: Yes (Other)
  Sender: FDA-Public Use
  Company Number: 050035PO

PATIENT
  Age: 42 Year
  Sex: Female

DRUGS (2)
  1. MEFENAMIC ACID [Suspect]
     Indication: DYSMENORRHOEA
     Dosage: 500 MG, 3 TIMES A DAY, PO
     Route: 048
     Dates: start: 20041217, end: 20041221
  2. FERROUS SULFATE TAB [Concomitant]

REACTIONS (2)
  - LEUKOPENIA [None]
  - THROMBOCYTOPENIA [None]
